FAERS Safety Report 9506439 (Version 1)
Quarter: 2013Q1

REPORT INFORMATION
  Report Type: Spontaneous
  Country: US (occurrence: None)
  Receive Date: 20130301
  Receipt Date: 20130301
  Transmission Date: 20140127
  Serious: Yes (Other)
  Sender: FDA-Public Use
  Company Number: US-JNJFOC-20120203516

PATIENT
  Sex: Female

DRUGS (2)
  1. MOTRIN (IBUPROFEN) [Suspect]
     Indication: BACK PAIN
     Route: 048
  2. ALEVE [Suspect]
     Indication: BACK PAIN
     Route: 048

REACTIONS (1)
  - Gastric haemorrhage [None]
